FAERS Safety Report 22254559 (Version 1)
Quarter: 2023Q2

REPORT INFORMATION
  Report Type: Spontaneous
  Country: US (occurrence: US)
  Receive Date: 20230426
  Receipt Date: 20230426
  Transmission Date: 20230722
  Serious: Yes (Other)
  Sender: FDA-Public Use
  Company Number: US-ASTELLAS-2023US012769

PATIENT
  Age: 75 Year
  Sex: Male

DRUGS (1)
  1. PADCEV [Suspect]
     Active Substance: ENFORTUMAB VEDOTIN-EJFV
     Indication: Transitional cell carcinoma
     Dosage: UNK UNK, UNKNOWN FREQ.
     Route: 065
     Dates: start: 2023, end: 20230403

REACTIONS (8)
  - Malignant neoplasm progression [Unknown]
  - Neuropathy peripheral [Not Recovered/Not Resolved]
  - Neurological decompensation [Not Recovered/Not Resolved]
  - Peripheral sensorimotor neuropathy [Not Recovered/Not Resolved]
  - Muscular weakness [Not Recovered/Not Resolved]
  - Gait disturbance [Not Recovered/Not Resolved]
  - Confusional state [Not Recovered/Not Resolved]
  - Hypovitaminosis [Not Recovered/Not Resolved]

NARRATIVE: CASE EVENT DATE: 20230101
